FAERS Safety Report 16283180 (Version 1)
Quarter: 2019Q2

REPORT INFORMATION
  Report Type: Spontaneous
  Country: GB (occurrence: GB)
  Receive Date: 20190507
  Receipt Date: 20190507
  Transmission Date: 20190711
  Serious: Yes (Hospitalization)
  Sender: FDA-Public Use
  Company Number: GB-TEVA-2019-GB-1045200

PATIENT
  Age: 87 Year
  Sex: Female
  Weight: 56.5 kg

DRUGS (13)
  1. CODEINE [Concomitant]
     Active Substance: CODEINE
     Indication: HEADACHE
  2. CALCICHEW D3 [Concomitant]
     Active Substance: CALCIUM\CHOLECALCIFEROL
  3. LEVOTHYROXINE SODIUM. [Concomitant]
     Active Substance: LEVOTHYROXINE SODIUM
  4. GABAPENTIN. [Concomitant]
     Active Substance: GABAPENTIN
     Indication: HEADACHE
  5. COCODAMOL [Suspect]
     Active Substance: ACETAMINOPHEN\CODEINE PHOSPHATE
     Indication: HEADACHE
     Dosage: ONE TO TWO 8/500MG TABLETS TO BE TAKEN FOUR TIMES A DAY WHEN REQUIRED.
     Route: 048
     Dates: start: 20190318, end: 20190326
  6. SIMVASTATIN. [Concomitant]
     Active Substance: SIMVASTATIN
  7. BENZYDAMINE [Concomitant]
     Active Substance: BENZYDAMINE
  8. CETRABEN EMOLLIENT CREAM [Concomitant]
  9. SODIUM HYALURONATE [Concomitant]
     Active Substance: HYALURONATE SODIUM
  10. LINAGLIPTIN [Concomitant]
     Active Substance: LINAGLIPTIN
  11. IRBESARTAN. [Concomitant]
     Active Substance: IRBESARTAN
  12. GLICLAZIDE [Concomitant]
     Active Substance: GLICLAZIDE
  13. AMITRIPTYLINE [Concomitant]
     Active Substance: AMITRIPTYLINE
     Indication: HEADACHE

REACTIONS (3)
  - Medication overuse headache [Recovering/Resolving]
  - Pain of skin [Unknown]
  - Erythema [Unknown]

NARRATIVE: CASE EVENT DATE: 20190319
